FAERS Safety Report 6576353-5 (Version None)
Quarter: 2010Q1

REPORT INFORMATION
  Report Type: 
  Country: None (occurrence: None)
  Receive Date: 20100210
  Receipt Date: 20091117
  Transmission Date: 20100710
  Serious: No
  Sender: FDA-Public Use
  Company Number: A0835210A

PATIENT
  Age: 56 Year
  Sex: Female
  Weight: 72.7 kg

DRUGS (2)
  1. OLUX E [Suspect]
     Indication: RASH
     Route: 061
     Dates: start: 20091110, end: 20091112
  2. OLUX [Suspect]
     Indication: RASH
     Route: 061
     Dates: start: 20091113

REACTIONS (3)
  - APPLICATION SITE DRYNESS [None]
  - APPLICATION SITE PRURITUS [None]
  - DRUG ADMINISTERED AT INAPPROPRIATE SITE [None]
